FAERS Safety Report 8539162 (Version 3)
Quarter: 2012Q4

REPORT INFORMATION
  Report Type: Report from Study
  Country: JP (occurrence: JP)
  Receive Date: 20120501
  Receipt Date: 20121108
  Transmission Date: 20130627
  Serious: Yes (Hospitalization, Other)
  Sender: FDA-Public Use
  Company Number: JP-ABBOTT-11P-087-0697488-00

PATIENT
  Age: 68 Year
  Sex: Female
  Weight: 45.7 kg

DRUGS (9)
  1. HUMIRA 40 MG/ 0.8 ML PRE-FILLED SYRINGE [Suspect]
     Indication: RHEUMATOID ARTHRITIS
     Route: 058
     Dates: start: 20091030, end: 20101224
  2. PROGRAF [Suspect]
     Indication: RHEUMATOID ARTHRITIS
     Route: 048
     Dates: start: 20080725, end: 20091224
  3. PROGRAF [Suspect]
     Route: 048
     Dates: start: 20091225, end: 20101224
  4. PREDNISOLONE [Suspect]
     Indication: RHEUMATOID ARTHRITIS
     Dates: start: 20091022, end: 20100930
  5. PREDNISOLONE [Suspect]
     Dates: start: 20101001, end: 20110303
  6. PREDNISOLONE [Suspect]
     Dates: start: 20110304
  7. SODIUM RISEDRONATE HYDRATE [Concomitant]
     Indication: PRODUCT USED FOR UNKNOWN INDICATION
     Dates: start: 20100820
  8. RABEPRAZOLE SODIUM [Concomitant]
     Indication: PROPHYLAXIS AGAINST GASTROINTESTINAL ULCER
     Dates: start: 20100122
  9. SODIUM AUROTHIOMALATE [Concomitant]
     Indication: PRODUCT USED FOR UNKNOWN INDICATION

REACTIONS (6)
  - Pneumonia cryptococcal [Recovered/Resolved]
  - Chest discomfort [Unknown]
  - Pleural effusion [Unknown]
  - Lung disorder [Unknown]
  - Pleural effusion [Unknown]
  - Lung neoplasm [Unknown]
